FAERS Safety Report 14239461 (Version 1)
Quarter: 2017Q4

REPORT INFORMATION
  Report Type: Report from Study
  Country: US (occurrence: US)
  Receive Date: 20171130
  Receipt Date: 20171130
  Transmission Date: 20180321
  Serious: Yes (Other)
  Sender: FDA-Public Use
  Company Number: US-BAYER-2017-008907

PATIENT
  Age: 57 Year
  Sex: Male

DRUGS (10)
  1. FENOFIBRATE. [Concomitant]
     Active Substance: FENOFIBRATE
  2. FUROSEMIDE. [Concomitant]
     Active Substance: FUROSEMIDE
  3. CARVEDILOL. [Concomitant]
     Active Substance: CARVEDILOL
  4. DULOXETINE. [Concomitant]
     Active Substance: DULOXETINE
  5. SPIRONOLACTONE. [Concomitant]
     Active Substance: SPIRONOLACTONE
  6. NEXAVAR [Suspect]
     Active Substance: SORAFENIB
     Indication: HEPATOCELLULAR CARCINOMA
     Dosage: 400 MG, BID
     Route: 048
     Dates: start: 201611, end: 20171001
  7. FLUTICASONE. [Concomitant]
     Active Substance: FLUTICASONE
  8. METFORMIN [Concomitant]
     Active Substance: METFORMIN HYDROCHLORIDE
     Dosage: WITH FOOD
  9. VITAMIN D2 [Concomitant]
     Active Substance: ERGOCALCIFEROL
  10. NEXAVAR [Suspect]
     Active Substance: SORAFENIB
     Indication: HEPATOCELLULAR CARCINOMA
     Dosage: DAILY DOSE 200 MG
     Route: 048
     Dates: start: 20171008

REACTIONS (13)
  - Transcatheter arterial chemoembolisation [None]
  - Rash macular [Unknown]
  - Nausea [None]
  - Fatigue [None]
  - Diarrhoea [Unknown]
  - Ammonia increased [Unknown]
  - Blister [None]
  - Dizziness [None]
  - Weight decreased [None]
  - Dry skin [None]
  - Frequent bowel movements [None]
  - Gastrointestinal pain [Unknown]
  - Diarrhoea [None]

NARRATIVE: CASE EVENT DATE: 20171002
